FAERS Safety Report 5570442-X (Version None)
Quarter: 2007Q4

REPORT INFORMATION
  Report Type: 
  Country: None (occurrence: None)
  Receive Date: 20071221
  Receipt Date: 20071005
  Transmission Date: 20080405
  Serious: Yes (Other)
  Sender: FDA-Public Use
  Company Number: US-BRISTOL-MYERS SQUIBB COMPANY-13558275

PATIENT
  Age: 79 Year
  Sex: Male
  Weight: 58 kg

DRUGS (4)
  1. ORENCIA [Suspect]
     Indication: RHEUMATOID ARTHRITIS
     Dosage: THERAPY START DATES AUGUST 2007 + 28-SEP-2007.
     Route: 042
     Dates: start: 20070101
  2. VITAMINS [Concomitant]
  3. VITAMIN B6 [Concomitant]
  4. ASPIRIN [Concomitant]

REACTIONS (4)
  - ASTHENIA [None]
  - DRUG INEFFECTIVE [None]
  - FATIGUE [None]
  - HYPOTENSION [None]
